FAERS Safety Report 7221331-6 (Version None)
Quarter: 2011Q1

REPORT INFORMATION
  Report Type: 
  Country: None (occurrence: None)
  Receive Date: 20110112
  Receipt Date: 20110103
  Transmission Date: 20110831
  Serious: Yes (Death)
  Sender: FDA-Public Use
  Company Number: GR-MILLENNIUM PHARMACEUTICALS, INC.-2010-06317

PATIENT

DRUGS (3)
  1. VELCADE [Suspect]
     Indication: MULTIPLE MYELOMA
     Dosage: UNK
  2. DEXAMETHASONE [Suspect]
     Indication: MULTIPLE MYELOMA
  3. ADRIAMYCIN PFS [Suspect]
     Indication: MULTIPLE MYELOMA

REACTIONS (1)
  - ILEUS PARALYTIC [None]
